FAERS Safety Report 9187671 (Version 1)
Quarter: 2013Q1

REPORT INFORMATION
  Report Type: Spontaneous
  Country: US (occurrence: US)
  Receive Date: 20130325
  Receipt Date: 20130325
  Transmission Date: 20140127
  Serious: Yes (Death, Other)
  Sender: FDA-Public Use
  Company Number: US-PFIZER INC-2011001809

PATIENT
  Age: 44 Year
  Sex: Female

DRUGS (6)
  1. GABAPENTIN [Suspect]
     Route: 048
  2. LISINOPRIL [Suspect]
     Dosage: UNK
     Route: 048
  3. METOPROLOL TARTRATE [Suspect]
     Dosage: UNK
     Route: 048
  4. FLUOXETINE HCL [Suspect]
     Dosage: UNK
     Route: 048
  5. TRAZODONE [Suspect]
     Route: 048
  6. ARIPIPRAZOLE [Suspect]
     Route: 048

REACTIONS (1)
  - Completed suicide [Fatal]
